FAERS Safety Report 9495393 (Version 1)
Quarter: 2013Q3

REPORT INFORMATION
  Report Type: Spontaneous
  Country: DE (occurrence: DE)
  Receive Date: 20130903
  Receipt Date: 20130903
  Transmission Date: 20140515
  Serious: Yes (Hospitalization, Disabling)
  Sender: FDA-Public Use
  Company Number: DE-VIIV HEALTHCARE LIMITED-D0080959A

PATIENT
  Age: 36 Year
  Sex: Male

DRUGS (21)
  1. COMBIVIR [Suspect]
     Indication: HIV INFECTION
     Route: 048
     Dates: start: 1998, end: 199807
  2. INVIRASE [Suspect]
     Indication: HIV INFECTION
     Route: 065
     Dates: start: 1998, end: 199807
  3. DIDANOSINE [Suspect]
     Indication: HIV INFECTION
     Route: 065
     Dates: start: 199807, end: 200202
  4. STAVUDINE [Suspect]
     Indication: HIV INFECTION
     Route: 065
     Dates: start: 199807, end: 200202
  5. NELFINAVIR [Suspect]
     Indication: HIV INFECTION
     Route: 065
     Dates: start: 199807
  6. NEVIRAPINE [Suspect]
     Indication: HIV INFECTION
     Route: 065
     Dates: start: 199904
  7. ABACAVIR [Suspect]
     Indication: HIV INFECTION
     Route: 065
  8. EFAVIRENZ [Suspect]
     Indication: HIV INFECTION
     Route: 065
  9. LOPINAVIR [Suspect]
     Indication: HIV INFECTION
     Route: 065
     Dates: start: 200101, end: 200202
  10. RITONAVIR [Suspect]
     Indication: HIV INFECTION
     Route: 065
     Dates: start: 200101
  11. ATAZANAVIR [Suspect]
     Indication: HIV INFECTION
     Route: 065
     Dates: start: 200404
  12. TENOFOVIR [Suspect]
     Indication: HIV INFECTION
     Route: 065
     Dates: start: 200404
  13. EMTRICITABINE [Suspect]
     Indication: HIV INFECTION
     Route: 065
     Dates: start: 200404
  14. TRUVADA [Suspect]
     Indication: HIV INFECTION
     Route: 065
  15. DARUNAVIR PLUS RITONAVIR [Suspect]
     Indication: HIV INFECTION
     Route: 065
     Dates: start: 200905
  16. ETRAVIRINE [Suspect]
     Indication: HIV INFECTION
     Route: 065
     Dates: start: 200905
  17. ZIDOVUDINE [Suspect]
     Indication: HIV INFECTION
     Route: 065
     Dates: start: 200905
  18. RALTEGRAVIR [Suspect]
     Indication: HIV INFECTION
     Route: 065
     Dates: start: 201107
  19. SAQUINAVIR [Suspect]
     Indication: HIV INFECTION
     Route: 065
  20. PANTOZOL [Concomitant]
     Route: 065
     Dates: start: 2004
  21. SIMVASTATIN [Concomitant]
     Route: 065
     Dates: start: 200610

REACTIONS (13)
  - Blindness [Not Recovered/Not Resolved]
  - Atypical mycobacterial infection [Unknown]
  - Cytomegalovirus chorioretinitis [Unknown]
  - Polyneuropathy [Unknown]
  - Cytomegalovirus oesophagitis [Unknown]
  - Myocardial infarction [Unknown]
  - Oesophageal candidiasis [Unknown]
  - Multiple-drug resistance [Unknown]
  - Diarrhoea [Unknown]
  - Lipoatrophy [Unknown]
  - Muscle atrophy [Unknown]
  - Treatment noncompliance [Unknown]
  - Drug intolerance [Unknown]
